FAERS Safety Report 13249642 (Version 1)
Quarter: 2017Q1

REPORT INFORMATION
  Report Type: Spontaneous
  Country: US (occurrence: US)
  Receive Date: 20170218
  Receipt Date: 20170218
  Transmission Date: 20170428
  Serious: No
  Sender: FDA-Public Use
  Company Number: US-ALLERGAN-1671101US

PATIENT
  Age: 51 Year
  Sex: Female

DRUGS (2)
  1. RESTASIS [Suspect]
     Active Substance: CYCLOSPORINE
     Dosage: 2 GTT, QD
     Route: 047
     Dates: start: 20160923, end: 20160926
  2. RESTASIS [Suspect]
     Active Substance: CYCLOSPORINE
     Indication: DRY EYE
     Dosage: 2 GTT, QD
     Route: 047
     Dates: start: 20160916, end: 20160917

REACTIONS (4)
  - Nausea [Recovered/Resolved]
  - Intraocular pressure increased [Recovered/Resolved with Sequelae]
  - Headache [Recovered/Resolved]
  - Ear congestion [Recovered/Resolved]
